FAERS Safety Report 17495824 (Version 7)
Quarter: 2023Q2

REPORT INFORMATION
  Report Type: Spontaneous
  Country: US (occurrence: US)
  Receive Date: 20200304
  Receipt Date: 20230530
  Transmission Date: 20230722
  Serious: Yes (Other)
  Sender: FDA-Public Use
  Company Number: US-PFIZER INC-2020096142

PATIENT
  Age: 65 Year
  Sex: Female

DRUGS (2)
  1. XELJANZ [Suspect]
     Active Substance: TOFACITINIB CITRATE
     Dosage: 5 MG, 2X/DAY
  2. XELJANZ [Suspect]
     Active Substance: TOFACITINIB CITRATE
     Dosage: 5 MG, 1X/DAY

REACTIONS (7)
  - Neoplasm malignant [Unknown]
  - Brain operation [Unknown]
  - Diabetes mellitus [Unknown]
  - Product prescribing issue [Unknown]
  - Intentional product use issue [Unknown]
  - Post procedural complication [Not Recovered/Not Resolved]
  - Memory impairment [Not Recovered/Not Resolved]
